FAERS Safety Report 4808550-0 (Version None)
Quarter: 2005Q4

REPORT INFORMATION
  Report Type: 
  Country: None (occurrence: None)
  Receive Date: 20051025
  Receipt Date: 20020620
  Transmission Date: 20060501
  Serious: Yes (Death, Hospitalization)
  Sender: FDA-Public Use
  Company Number: PL-GLAXOSMITHKLINE-A0372317A

PATIENT
  Age: 67 Year
  Sex: Male

DRUGS (6)
  1. VINORELBINE TARTRATE [Suspect]
     Indication: MULTIPLE MYELOMA
     Dosage: 25MGM2 SEE DOSAGE TEXT
     Route: 042
     Dates: start: 19980908, end: 19980911
  2. DEXAMETHASONE [Suspect]
     Indication: MULTIPLE MYELOMA
     Dosage: 40MGD SEE DOSAGE TEXT
     Route: 048
     Dates: start: 19980908, end: 19980911
  3. RANITIDINE [Concomitant]
     Dosage: 300MG PER DAY
     Route: 048
     Dates: start: 19980908, end: 19980912
  4. DIGOXIN [Concomitant]
     Route: 048
     Dates: start: 19980910, end: 19980910
  5. DIGOXIN [Concomitant]
     Dosage: .25MG PER DAY
     Route: 042
     Dates: start: 19980911, end: 19980912
  6. PAMIDRONIC ACID [Concomitant]
     Dosage: 90MG PER DAY
     Route: 042
     Dates: start: 19980908

REACTIONS (16)
  - AGRANULOCYTOSIS [None]
  - ARRHYTHMIA [None]
  - ATRIAL FIBRILLATION [None]
  - CARDIAC ARREST [None]
  - CARDIAC FAILURE [None]
  - CARDIAC MURMUR [None]
  - CARDIOGENIC SHOCK [None]
  - CHEST PAIN [None]
  - DYSPNOEA [None]
  - HYPONATRAEMIA [None]
  - LEUKOPENIA [None]
  - MALNUTRITION [None]
  - RADIATION SKIN INJURY [None]
  - RESPIRATORY ARREST [None]
  - SKIN HYPERPIGMENTATION [None]
  - TACHYCARDIA [None]
